FAERS Safety Report 8315749-8 (Version None)
Quarter: 2012Q2

REPORT INFORMATION
  Report Type: 
  Country: None (occurrence: None)
  Receive Date: 20120426
  Receipt Date: 20120416
  Transmission Date: 20120825
  Serious: Yes (Other)
  Sender: FDA-Public Use
  Company Number: US-RB-039471-12

PATIENT
  Age: 35 Year
  Sex: Female

DRUGS (1)
  1. BUPRENORPHINE [Suspect]
     Indication: DRUG DEPENDENCE
     Route: 060
     Dates: start: 20120301

REACTIONS (4)
  - UNDERDOSE [None]
  - MATERNAL EXPOSURE DURING PREGNANCY [None]
  - FOETAL HEART RATE ABNORMAL [None]
  - ABORTION SPONTANEOUS INCOMPLETE [None]
